FAERS Safety Report 5181720-0 (Version None)
Quarter: 2006Q4

REPORT INFORMATION
  Report Type: 
  Country: None (occurrence: None)
  Receive Date: 20061220
  Receipt Date: 20060228
  Transmission Date: 20070319
  Serious: No
  Sender: FDA-Public Use
  Company Number: US-GLAXOSMITHKLINE-A0595673A

PATIENT
  Age: 46 Year
  Sex: Male

DRUGS (2)
  1. COMMIT [Suspect]
  2. COMMIT [Suspect]
     Dates: start: 20051201

REACTIONS (3)
  - PHARMACEUTICAL PRODUCT COMPLAINT [None]
  - THERMAL BURN [None]
  - TONGUE DISORDER [None]
